FAERS Safety Report 14557033 (Version 1)
Quarter: 2018Q1

REPORT INFORMATION
  Report Type: Spontaneous
  Country: US (occurrence: US)
  Receive Date: 20180221
  Receipt Date: 20180221
  Transmission Date: 20180509
  Serious: No
  Sender: FDA-Public Use
  Company Number: US-TEVA-2018-US-852120

PATIENT
  Sex: Female

DRUGS (3)
  1. BUDESONIDE (ENTERIC COATED) [Suspect]
     Active Substance: BUDESONIDE
     Indication: CROHN^S DISEASE
     Dates: start: 201712
  2. LAMOTRIGINE. [Suspect]
     Active Substance: LAMOTRIGINE
     Route: 065
  3. PREDNISONE. [Suspect]
     Active Substance: PREDNISONE
     Route: 065
     Dates: start: 20180117

REACTIONS (5)
  - Throat irritation [Unknown]
  - Dyspnoea [Unknown]
  - Nausea [Unknown]
  - Vomiting [Unknown]
  - Visual impairment [Unknown]

NARRATIVE: CASE EVENT DATE: 20180117
